FAERS Safety Report 4391660-2 (Version None)
Quarter: 2004Q3

REPORT INFORMATION
  Report Type: 
  Country: None (occurrence: None)
  Receive Date: 20040702
  Receipt Date: 20040331
  Transmission Date: 20050211
  Serious: Yes (Other)
  Sender: FDA-Public Use
  Company Number: 2004UW06461

PATIENT
  Age: 77 Year
  Sex: Female
  Weight: 71.6683 kg

DRUGS (5)
  1. CRESTOR [Suspect]
     Indication: BLOOD CHOLESTEROL INCREASED
     Dosage: 10 MG PO
     Route: 048
     Dates: start: 20040211, end: 20040303
  2. THYROID TAB [Concomitant]
  3. VERAPAMIL [Concomitant]
  4. METFORMIN [Concomitant]
  5. DIOVAN [Concomitant]

REACTIONS (3)
  - BLOOD UREA INCREASED [None]
  - LETHARGY [None]
  - PAIN IN EXTREMITY [None]
